FAERS Safety Report 7116790-3 (Version None)
Quarter: 2010Q4

REPORT INFORMATION
  Report Type: 
  Country: None (occurrence: None)
  Receive Date: 20101115
  Receipt Date: 20101110
  Transmission Date: 20110411
  Serious: Yes (Death)
  Sender: FDA-Public Use
  Company Number: 2010US004624

PATIENT
  Age: 55 Year
  Sex: Female

DRUGS (17)
  1. PROGRAF [Suspect]
     Indication: RENAL TRANSPLANT
     Dosage: 6 MG, UID/QD, ORAL
     Route: 048
     Dates: start: 20050601
  2. CELEXA [Concomitant]
  3. DIATX (CYANOCOBALAMIN) [Concomitant]
  4. NORVASC [Concomitant]
  5. PREDNISONE [Concomitant]
  6. PHENYTOIN [Concomitant]
  7. PLAVIX [Concomitant]
  8. VYTORIN [Concomitant]
  9. ASPIRIN [Concomitant]
  10. DILTIAZEM [Concomitant]
  11. MYFORTIC [Concomitant]
  12. LASIX [Concomitant]
  13. ATENOLOL [Concomitant]
  14. CLONAZEPAM [Concomitant]
  15. MAGNESIUM [Concomitant]
  16. OMEPRAZOLE [Concomitant]
  17. CALCITRIOL [Concomitant]

REACTIONS (2)
  - PNEUMONIA [None]
  - SEPSIS [None]
